FAERS Safety Report 4263830-5 (Version None)
Quarter: 2004Q1

REPORT INFORMATION
  Report Type: 
  Country: None (occurrence: None)
  Receive Date: 20040105
  Receipt Date: 20040105
  Transmission Date: 20041129
  Serious: Yes (Life-Threatening, Hospitalization)
  Sender: FDA-Public Use
  Company Number: None

PATIENT
  Sex: Male
  Weight: 90 kg

DRUGS (5)
  1. GEMTUZUMAB OZOGAMICIN (MYLOTARG) [Suspect]
     Indication: ACUTE MYELOID LEUKAEMIA
     Dosage: 6 MG/M2 1 DOSE OVER 2 HRS IV
     Route: 042
     Dates: start: 20031219
  2. GEMTUZUMAB OZOGAMICIN (MYLOTARG) [Suspect]
     Indication: AUTOLOGOUS BONE MARROW TRANSPLANTATION THERAPY
     Dosage: 6 MG/M2 1 DOSE OVER 2 HRS IV
     Route: 042
     Dates: start: 20031219
  3. GEMTUZUMAB OZOGAMICIN (MYLOTARG) [Suspect]
     Indication: PREMEDICATION
     Dosage: 6 MG/M2 1 DOSE OVER 2 HRS IV
     Route: 042
     Dates: start: 20031219
  4. DAUNORUBICIN HCL [Concomitant]
  5. CYTARABINE [Concomitant]

REACTIONS (5)
  - ABDOMINAL PAIN [None]
  - ASCITES [None]
  - LIVER FUNCTION TEST ABNORMAL [None]
  - NEUTROPENIA [None]
  - VENOOCCLUSIVE LIVER DISEASE [None]
